FAERS Safety Report 4994705-1 (Version None)
Quarter: 2006Q1

REPORT INFORMATION
  Report Type: 
  Country: None (occurrence: None)
  Receive Date: 20060313
  Receipt Date: 20050419
  Transmission Date: 20060701
  Serious: Yes (Hospitalization)
  Sender: FDA-Public Use
  Company Number: PHEH2005US04520

PATIENT
  Age: 13 Year
  Sex: Female

DRUGS (2)
  1. TRILEPTAL [Suspect]
     Indication: CONVULSION
     Dosage: 600 MG,BID,ORAL
     Route: 048
     Dates: start: 20050330, end: 20050408
  2. KEPPRA [Concomitant]

REACTIONS (2)
  - RASH [None]
  - STEVENS-JOHNSON SYNDROME [None]
